FAERS Safety Report 7608746-9 (Version None)
Quarter: 2011Q3

REPORT INFORMATION
  Report Type: 
  Country: None (occurrence: None)
  Receive Date: 20110714
  Receipt Date: 20110714
  Transmission Date: 20111222
  Serious: Yes (Life-Threatening)
  Sender: FDA-Public Use
  Company Number: None

PATIENT
  Age: 46 Year
  Sex: Female
  Weight: 90.718 kg

DRUGS (1)
  1. ASMANEX TWISTHALER [Suspect]
     Indication: ASTHMA
     Dosage: 220MCG
     Route: 050
     Dates: start: 20110706, end: 20110712

REACTIONS (16)
  - VOMITING [None]
  - HYPOPHAGIA [None]
  - ASTHENIA [None]
  - CHEST DISCOMFORT [None]
  - PAIN IN EXTREMITY [None]
  - ABDOMINAL PAIN [None]
  - NEPHROLITHIASIS [None]
  - DIZZINESS [None]
  - ASTHMA [None]
  - OBSTRUCTIVE AIRWAYS DISORDER [None]
  - PANIC REACTION [None]
  - HEADACHE [None]
  - RENAL HAEMORRHAGE [None]
  - DYSPNOEA [None]
  - HAEMOPTYSIS [None]
  - MUSCLE RUPTURE [None]
